FAERS Safety Report 22603690 (Version 1)
Quarter: 2023Q2

REPORT INFORMATION
  Report Type: Spontaneous
  Country: US (occurrence: US)
  Receive Date: 20230615
  Receipt Date: 20230615
  Transmission Date: 20230721
  Serious: Yes (Other)
  Sender: FDA-Public Use
  Company Number: US-STRIDES ARCOLAB LIMITED-2023SP003884

PATIENT
  Age: 28 Year
  Sex: Male

DRUGS (22)
  1. ALPRAZOLAM [Suspect]
     Active Substance: ALPRAZOLAM
     Indication: Mental disorder
     Dosage: UNK
     Route: 065
  2. BUSPIRONE HYDROCHLORIDE [Suspect]
     Active Substance: BUSPIRONE HYDROCHLORIDE
     Indication: Mental disorder
     Dosage: UNK
     Route: 065
  3. CITALOPRAM [Suspect]
     Active Substance: CITALOPRAM HYDROBROMIDE
     Indication: Mental disorder
     Dosage: UNK
     Route: 065
  4. FLUOXETINE [Suspect]
     Active Substance: FLUOXETINE HYDROCHLORIDE
     Indication: Mental disorder
     Dosage: UNK
     Route: 065
  5. METHYLPHENIDATE [Suspect]
     Active Substance: METHYLPHENIDATE
     Indication: Mental disorder
     Dosage: UNK
     Route: 065
  6. OLANZAPINE [Suspect]
     Active Substance: OLANZAPINE
     Indication: Mental disorder
     Dosage: UNK
     Route: 065
  7. TOPIRAMATE [Suspect]
     Active Substance: TOPIRAMATE
     Indication: Mental disorder
     Dosage: UNK
     Route: 065
  8. TRAZODONE [Suspect]
     Active Substance: TRAZODONE HYDROCHLORIDE
     Indication: Mental disorder
     Dosage: UNK
     Route: 065
  9. ZOLPIDEM [Suspect]
     Active Substance: ZOLPIDEM TARTRATE
     Indication: Mental disorder
     Dosage: UNK
     Route: 065
  10. ARIPIPRAZOLE [Suspect]
     Active Substance: ARIPIPRAZOLE
     Indication: Mental disorder
     Dosage: UNK
     Route: 065
  11. CLOMIPRAMINE [Suspect]
     Active Substance: CLOMIPRAMINE
     Indication: Mental disorder
     Dosage: UNK
     Route: 065
  12. DULOXETINE [Suspect]
     Active Substance: DULOXETINE
     Indication: Mental disorder
     Dosage: UNK
     Route: 065
  13. ESCITALOPRAM [Suspect]
     Active Substance: ESCITALOPRAM OXALATE
     Indication: Mental disorder
     Dosage: UNK
     Route: 065
  14. FLUVOXAMINE [Suspect]
     Active Substance: FLUVOXAMINE
     Indication: Mental disorder
     Dosage: UNK
     Route: 065
  15. LAMOTRIGINE [Suspect]
     Active Substance: LAMOTRIGINE
     Indication: Mental disorder
     Dosage: UNK
     Route: 065
  16. MIRTAZAPINE [Suspect]
     Active Substance: MIRTAZAPINE
     Indication: Mental disorder
     Dosage: UNK
     Route: 065
  17. MODAFINIL [Suspect]
     Active Substance: MODAFINIL
     Indication: Mental disorder
     Dosage: UNK
     Route: 065
  18. PAROXETINE [Suspect]
     Active Substance: PAROXETINE
     Indication: Mental disorder
     Dosage: UNK
     Route: 065
  19. SELEGILINE [Suspect]
     Active Substance: SELEGILINE
     Indication: Mental disorder
     Dosage: UNK
     Route: 062
  20. VENLAFAXINE [Suspect]
     Active Substance: VENLAFAXINE HYDROCHLORIDE
     Indication: Mental disorder
     Dosage: UNK
     Route: 065
  21. VORTIOXETINE [Suspect]
     Active Substance: VORTIOXETINE
     Indication: Mental disorder
     Dosage: UNK
     Route: 065
  22. DIVALPROEX SODIUM [Suspect]
     Active Substance: DIVALPROEX SODIUM
     Indication: Mental disorder
     Dosage: UNK
     Route: 065

REACTIONS (2)
  - Drug ineffective [Unknown]
  - Off label use [Unknown]
